FAERS Safety Report 6402585-2 (Version None)
Quarter: 2009Q4

REPORT INFORMATION
  Report Type: 
  Country: None (occurrence: None)
  Receive Date: 20091009
  Receipt Date: 20090928
  Transmission Date: 20100525
  Serious: Yes (Hospitalization)
  Sender: FDA-Public Use
  Company Number: 1000009176

PATIENT
  Age: 72 Year
  Sex: Male

DRUGS (6)
  1. MEMANTINE HCL [Suspect]
     Indication: DEMENTIA
     Dosage: 20 MG (20 MG, 1 IN 1 D), ORAL
     Route: 048
     Dates: start: 20090922, end: 20090922
  2. MEMANTINE HCL [Suspect]
     Indication: DEMENTIA
     Dosage: 10 MG, (10 MG, 1 IN 1 D),ORAL
     Route: 048
     Dates: start: 20090908, end: 20090921
  3. CYMBALTA [Concomitant]
  4. ASPIRIN [Concomitant]
  5. DEPAKINE CHRONO [Concomitant]
  6. ARICEPT [Concomitant]

REACTIONS (2)
  - EPILEPSY [None]
  - EXTRAPYRAMIDAL DISORDER [None]
